FAERS Safety Report 21862862 (Version 1)
Quarter: 2023Q1

REPORT INFORMATION
  Report Type: Spontaneous
  Country: US (occurrence: US)
  Receive Date: 20230114
  Receipt Date: 20230114
  Transmission Date: 20230418
  Serious: Yes (Other)
  Sender: FDA-Public Use
  Company Number: US-TEVA-2023-US-2844683

PATIENT
  Sex: Female

DRUGS (2)
  1. CLONAZEPAM [Suspect]
     Active Substance: CLONAZEPAM
     Indication: Tremor
     Dosage: 0.5 MILLIGRAM
     Route: 065
  2. CLONAZEPAM [Suspect]
     Active Substance: CLONAZEPAM
     Indication: Anxiety

REACTIONS (7)
  - Schizophrenia [Unknown]
  - Hallucination [Unknown]
  - Malaise [Unknown]
  - Depressed mood [Unknown]
  - Night sweats [Unknown]
  - Insomnia [Unknown]
  - Product use in unapproved indication [Unknown]
